FAERS Safety Report 15827795 (Version 1)
Quarter: 2019Q1

REPORT INFORMATION
  Report Type: Spontaneous
  Country: US (occurrence: US)
  Receive Date: 20190115
  Receipt Date: 20190115
  Transmission Date: 20190417
  Serious: Yes (Hospitalization, Other)
  Sender: FDA-Public Use
  Company Number: US-AMAG PHARMACEUTICALS, INC.-AMAG201900064

PATIENT
  Sex: Female

DRUGS (1)
  1. INTRAROSA [Suspect]
     Active Substance: PRASTERONE
     Indication: PRODUCT USED FOR UNKNOWN INDICATION
     Dosage: 6.5 MG, QD
     Route: 067

REACTIONS (5)
  - Agitation [Recovered/Resolved]
  - Hypertension [Recovered/Resolved]
  - Emotional disorder [Recovered/Resolved]
  - Hot flush [Recovered/Resolved]
  - Irritability [Recovered/Resolved]
